FAERS Safety Report 6504443-1 (Version None)
Quarter: 2009Q4

REPORT INFORMATION
  Report Type: 
  Country: None (occurrence: None)
  Receive Date: 20091215
  Receipt Date: 20091204
  Transmission Date: 20100525
  Serious: Yes (Death)
  Sender: FDA-Public Use
  Company Number: 2009AC000495

PATIENT
  Age: 56 Year
  Sex: Male

DRUGS (13)
  1. DIGOXIN [Suspect]
     Dosage: .125 MG;QOD;PO
     Route: 048
  2. AMIODARONE HCL [Concomitant]
  3. COREG [Concomitant]
  4. LIPITOR [Concomitant]
  5. ASPIRIN [Concomitant]
  6. KLOR-CON [Concomitant]
  7. TORSEMIDE [Concomitant]
  8. METOLAZONE [Concomitant]
  9. NIASPAN [Concomitant]
  10. CARAFATE [Concomitant]
  11. PACERONE [Concomitant]
  12. NEXIUM [Concomitant]
  13. LASIX [Concomitant]

REACTIONS (10)
  - ANXIETY [None]
  - APNOEA [None]
  - CARDIAC FAILURE CONGESTIVE [None]
  - ECONOMIC PROBLEM [None]
  - MULTIPLE INJURIES [None]
  - PAIN [None]
  - SEPSIS [None]
  - SNORING [None]
  - VENTRICULAR FIBRILLATION [None]
  - VENTRICULAR TACHYCARDIA [None]
